FAERS Safety Report 10811388 (Version 1)
Quarter: 2015Q1

REPORT INFORMATION
  Report Type: Spontaneous
  Country: JP (occurrence: None)
  Receive Date: 20150212
  Receipt Date: 20150212
  Transmission Date: 20150721
  Serious: Yes (Life-Threatening)
  Sender: FDA-Public Use
  Company Number: INT_00684_2015

PATIENT
  Age: 74 Year
  Sex: Female

DRUGS (2)
  1. CARBOPLATIN (CARBOPLATIN) [Suspect]
     Active Substance: CARBOPLATIN
     Indication: METASTATIC MALIGNANT MELANOMA
     Dosage: AREA UNDER THE CURVE OF 2
  2. PACLITAXEL (PACLITAXEL) (HQ SPECIALTY) [Suspect]
     Active Substance: PACLITAXEL
     Indication: METASTATIC MALIGNANT MELANOMA

REACTIONS (10)
  - Ileus [None]
  - Blood urea increased [None]
  - Vomiting [None]
  - Shock [None]
  - Peritonitis [None]
  - Intestinal ischaemia [None]
  - Blood creatinine increased [None]
  - Gastrointestinal necrosis [None]
  - Dehydration [None]
  - Urine output decreased [None]
